FAERS Safety Report 8614155 (Version 3)
Quarter: 2012Q4

REPORT INFORMATION
  Report Type: 
  Country: DE (occurrence: DE)
  Receive Date: 20120614
  Receipt Date: 20121003
  Transmission Date: 20130627
  Serious: Yes (Hospitalization, Other)
  Sender: FDA-Public Use
  Company Number: DE-BAYER-2012-058803

PATIENT
  Age: 39 Year
  Sex: Female

DRUGS (1)
  1. BETAFERON [Suspect]
     Indication: CLINICALLY ISOLATED SYNDROME
     Dosage: Daily dose 250 ?g
     Route: 058
     Dates: start: 201104

REACTIONS (2)
  - Abscess [None]
  - Skin necrosis [Not Recovered/Not Resolved]
